FAERS Safety Report 6288832-9 (Version None)
Quarter: 2009Q3

REPORT INFORMATION
  Report Type: 
  Country: None (occurrence: None)
  Receive Date: 20090727
  Receipt Date: 20090710
  Transmission Date: 20100115
  Serious: Yes (Hospitalization)
  Sender: FDA-Public Use
  Company Number: 2009BI021827

PATIENT
  Age: 31 Year
  Sex: Female

DRUGS (10)
  1. ZEVALIN [Suspect]
     Indication: B-CELL LYMPHOMA
     Dosage: 768 MBQ; 1X; IV
     Route: 042
     Dates: start: 20090203, end: 20090210
  2. RITUXIMAB [Concomitant]
  3. POLARAMINE [Concomitant]
  4. LOXONIN [Concomitant]
  5. MILMAG [Concomitant]
  6. CYCLOPHOSPHAMIDE [Concomitant]
  7. DOXORUBICIN HCL [Concomitant]
  8. VINCRISTINE SULFATE [Concomitant]
  9. PREDNISOLONE [Concomitant]
  10. FLUDEOXYGLUCOSE [Concomitant]

REACTIONS (1)
  - BONE MARROW FAILURE [None]
